FAERS Safety Report 5309444-7 (Version None)
Quarter: 2007Q2

REPORT INFORMATION
  Report Type: 
  Country: None (occurrence: None)
  Receive Date: 20070427
  Receipt Date: 20070418
  Transmission Date: 20071010
  Serious: Yes (Other)
  Sender: FDA-Public Use
  Company Number: PHEH2007US02639

PATIENT
  Age: 57 Year
  Sex: Male

DRUGS (3)
  1. AREDIA [Suspect]
     Indication: MULTIPLE MYELOMA
     Dosage: 90MG MONTHLY
     Dates: start: 20020926, end: 20060202
  2. COUMADIN [Concomitant]
     Indication: THROMBOSIS PROPHYLAXIS
  3. DECADRON #1 [Concomitant]
     Dosage: 20MG DAY 1-4 MONTHLY X 4
     Dates: end: 20030201

REACTIONS (18)
  - BONE DISORDER [None]
  - DENTAL CARE [None]
  - ERYTHEMA [None]
  - GINGIVAL BLEEDING [None]
  - GINGIVAL INFECTION [None]
  - GINGIVAL RECESSION [None]
  - GINGIVAL SWELLING [None]
  - JAW DISORDER [None]
  - LOOSE TOOTH [None]
  - ORAL INFECTION [None]
  - ORAL PAIN [None]
  - ORAL SOFT TISSUE DISORDER [None]
  - OSTEOMYELITIS [None]
  - OSTEONECROSIS [None]
  - PRIMARY SEQUESTRUM [None]
  - STEM CELL TRANSPLANT [None]
  - TOOTH EXTRACTION [None]
  - WOUND SECRETION [None]
